FAERS Safety Report 5952672-8 (Version None)
Quarter: 2008Q4

REPORT INFORMATION
  Report Type: 
  Country: None (occurrence: None)
  Receive Date: 20081031
  Receipt Date: 20080624
  Transmission Date: 20090506
  Serious: No
  Sender: FDA-Public Use
  Company Number: 2008-US-000314

PATIENT
  Age: 11 Year
  Sex: Male
  Weight: 28.6 kg

DRUGS (2)
  1. INCRELEX [Suspect]
     Indication: BODY HEIGHT BELOW NORMAL
     Dosage: 35 MG, BID, SUBCUTANEOUS; 34 UG/KG, BID, SUBCUTANEOUS
     Route: 058
     Dates: start: 20080229, end: 20080519
  2. INCRELEX [Suspect]
     Indication: BODY HEIGHT BELOW NORMAL
     Dosage: 35 MG, BID, SUBCUTANEOUS; 34 UG/KG, BID, SUBCUTANEOUS
     Route: 058
     Dates: start: 20080520

REACTIONS (1)
  - ABNORMAL BEHAVIOUR [None]
